FAERS Safety Report 9214020 (Version 1)
Quarter: 2013Q2

REPORT INFORMATION
  Report Type: Spontaneous
  Country: US (occurrence: US)
  Receive Date: 20130405
  Receipt Date: 20130405
  Transmission Date: 20140414
  Serious: Yes (Other)
  Sender: FDA-Public Use
  Company Number: US-BAYER-2013-041698

PATIENT
  Age: 49 Year
  Sex: Female
  Weight: 150 kg

DRUGS (4)
  1. ALEVE CAPLET [Suspect]
     Dosage: 2 DF, QD
     Route: 048
  2. ALEVE TABLET [Suspect]
     Dosage: 2 DF, QD
     Route: 048
  3. ALEVE GELCAP [Suspect]
     Dosage: 2 DF, QD
     Route: 048
  4. DEXILANT [Concomitant]

REACTIONS (3)
  - Amnesia [None]
  - Therapeutic product ineffective [None]
  - Incorrect drug administration duration [None]
